FAERS Safety Report 8911285 (Version 1)
Quarter: 2012Q4

REPORT INFORMATION
  Report Type: 
  Country: US (occurrence: US)
  Receive Date: 20121116
  Receipt Date: 20121116
  Transmission Date: 20130627
  Serious: Yes (Other)
  Sender: FDA-Public Use
  Company Number: US-GLAXOSMITHKLINE-A0995307A

PATIENT
  Age: 59 Year
  Sex: Male

DRUGS (8)
  1. VOTRIENT [Suspect]
     Indication: RECTAL CANCER
     Dosage: 800MG per day
     Route: 048
     Dates: start: 20120728
  2. KLONOPIN [Concomitant]
  3. METOPROLOL [Concomitant]
  4. CYMBALTA [Concomitant]
  5. PRILOSEC [Concomitant]
  6. GLIPIZIDE [Concomitant]
  7. ZOFRAN [Concomitant]
  8. KETOCONAZOLE [Concomitant]
     Route: 061

REACTIONS (1)
  - Rectal haemorrhage [Unknown]
